FAERS Safety Report 7964625-9 (Version None)
Quarter: 2011Q4

REPORT INFORMATION
  Report Type: 
  Country: None (occurrence: None)
  Receive Date: 20111208
  Receipt Date: 20111128
  Transmission Date: 20120403
  Serious: Yes (Other)
  Sender: FDA-Public Use
  Company Number: US-JNJFOC-20111105648

PATIENT
  Sex: Male

DRUGS (9)
  1. SEREVENT [Concomitant]
     Indication: ASTHMA
  2. RAMIPRIL [Concomitant]
     Indication: BLOOD PRESSURE
  3. OMEPRAZOLE [Concomitant]
     Indication: GASTROOESOPHAGEAL REFLUX DISEASE
  4. SIMVASTATIN [Concomitant]
     Indication: BLOOD CHOLESTEROL
  5. AZMACORT [Concomitant]
     Indication: ASTHMA
  6. ALBUTEROL [Concomitant]
     Indication: ASTHMA
  7. PREDNISONE TAB [Concomitant]
     Indication: PSORIATIC ARTHROPATHY
  8. METHOTREXATE [Concomitant]
     Indication: PSORIATIC ARTHROPATHY
  9. REMICADE [Suspect]
     Indication: PSORIATIC ARTHROPATHY
     Dosage: 8 (UNITS/MONTHLY)
     Route: 042

REACTIONS (3)
  - PERIODONTAL DISEASE [None]
  - TOOTH LOSS [None]
  - GINGIVAL DISORDER [None]
